FAERS Safety Report 25659268 (Version 1)
Quarter: 2025Q3

REPORT INFORMATION
  Report Type: Spontaneous
  Country: EU (occurrence: EU)
  Receive Date: 20250808
  Receipt Date: 20250808
  Transmission Date: 20251021
  Serious: Yes (Death, Hospitalization, Other)
  Sender: ACCORD
  Company Number: None

PATIENT
  Age: 80 Year
  Sex: Male

DRUGS (12)
  1. LEVETIRACETAM [Suspect]
     Active Substance: LEVETIRACETAM
     Indication: Epilepsy
     Dosage: 1-0-2
     Dates: start: 202502
  2. LEVETIRACETAM [Suspect]
     Active Substance: LEVETIRACETAM
     Indication: Epilepsy
     Dosage: 1-0-1
     Dates: start: 20250610, end: 20250614
  3. ASPIRIN [Concomitant]
     Active Substance: ASPIRIN
     Dosage: 1-0-0
     Dates: start: 20250607, end: 20250620
  4. PIPERACILLIN AND TAZOBACTAM [Concomitant]
     Active Substance: PIPERACILLIN SODIUM\TAZOBACTAM SODIUM
     Dosage: 1-1-1
     Dates: start: 20250611, end: 20250620
  5. AMPICILLIN [Concomitant]
     Active Substance: AMPICILLIN
     Dosage: 1-1-1
     Dates: start: 20250607, end: 20250610
  6. PANTOPRAZOLE [Concomitant]
     Active Substance: PANTOPRAZOLE
     Dosage: 1-0-0
     Dates: start: 20250607, end: 20250620
  7. SODIUM BICARBONATE [Concomitant]
     Active Substance: SODIUM BICARBONATE
     Dosage: 1-1-1
     Dates: start: 20250607, end: 20250612
  8. PANCRELIPASE [Concomitant]
     Active Substance: PANCRELIPASE
     Dosage: 1-1-0
     Dates: start: 20250607, end: 20250620
  9. CLOPIDOGREL [Concomitant]
     Active Substance: CLOPIDOGREL BISULFATE
     Dosage: 1-0-0
     Dates: start: 20250607, end: 20250609
  10. TORSEMIDE [Concomitant]
     Active Substance: TORSEMIDE
     Dosage: 1-0-0
     Dates: start: 20250607, end: 20250611
  11. BISOPROLOL FUMARATE [Concomitant]
     Active Substance: BISOPROLOL FUMARATE
     Dosage: 1-0-0.5
     Dates: start: 20250607, end: 20250620
  12. SIMVASTATIN [Concomitant]
     Active Substance: SIMVASTATIN
     Dosage: 0-0-1
     Dates: start: 20250607, end: 20250609

REACTIONS (4)
  - Toxic epidermal necrolysis [Fatal]
  - Stevens-Johnson syndrome [Fatal]
  - Septic shock [Fatal]
  - Skin reaction [Unknown]

NARRATIVE: CASE EVENT DATE: 20250201
